FAERS Safety Report 17941277 (Version 2)
Quarter: 2020Q3

REPORT INFORMATION
  Report Type: Report from Study
  Country: US (occurrence: US)
  Receive Date: 20200624
  Receipt Date: 20200714
  Transmission Date: 20201103
  Serious: Yes (Death, Hospitalization)
  Sender: FDA-Public Use
  Company Number: US-ACTELION-A-US2019-184949

PATIENT
  Age: 38 Year
  Sex: Female
  Weight: 58.96 kg

DRUGS (37)
  1. CHOLESTYRAMINE. [Concomitant]
     Active Substance: CHOLESTYRAMINE
     Dosage: 4 MG, QID PWD PKT
     Route: 048
  2. SODIUM CHLORIDE 0.9% [Concomitant]
     Active Substance: SODIUM CHLORIDE
     Dosage: 10 MG, Q12HRS
  3. FILGRASTIM [Concomitant]
     Active Substance: FILGRASTIM
     Dosage: 300 MCG, QD
     Route: 058
  4. ALBUTEROL HFA [Concomitant]
     Active Substance: ALBUTEROL SULFATE
     Dosage: 0.5% 2.5 MG/0.5 ML PRN
  5. IPRATROPIUM [Concomitant]
     Active Substance: IPRATROPIUM
     Dosage: 0.2 MG/ML, PRN
  6. MAGNESIUM SULFATE. [Concomitant]
     Active Substance: MAGNESIUM SULFATE
     Dosage: 2 GM/H20 50 ML PRN
     Route: 042
  7. POTASSIUM CHLORIDE. [Concomitant]
     Active Substance: POTASSIUM CHLORIDE
     Dosage: 20 MEQ/15 ML LIQ
  8. POTASSIUM PHOSPHATE DIBASIC;SODIUM CHLORIDE;SODIUM PHOSPHATE [Concomitant]
     Dosage: 30 UNK
     Route: 042
  9. VELETRI [Suspect]
     Active Substance: EPOPROSTENOL
     Dosage: 1.5 MG
     Route: 042
  10. LETAIRIS [Concomitant]
     Active Substance: AMBRISENTAN
  11. PANTOPRAZOLE [Concomitant]
     Active Substance: PANTOPRAZOLE
     Dosage: 40 MG BEFORE BREAKFAST
     Route: 048
  12. POTASSIUM CHLORIDE. [Concomitant]
     Active Substance: POTASSIUM CHLORIDE
     Dosage: 20 MEQ TID BEFORE BREAKFAST
     Route: 048
  13. VANCOMYCIN [Concomitant]
     Active Substance: VANCOMYCIN
     Dosage: 1 UNK
     Route: 042
  14. CALCIUM GLUCONATE AND SODIUM CHLORIDE [Concomitant]
     Dosage: 2 G/ML, PRN
     Route: 042
  15. ONDANSETRON [Concomitant]
     Active Substance: ONDANSETRON
     Dosage: 4 MG, BID
     Route: 042
  16. POTASSIUM CHLORIDE. [Concomitant]
     Active Substance: POTASSIUM CHLORIDE
     Dosage: 20 MEQ, PRN
     Route: 048
  17. POTASSIUM PHOSPHATE DIBASIC;SODIUM CHLORIDE;SODIUM PHOSPHATE [Concomitant]
     Dosage: 15 MMOL, PRN
     Route: 042
  18. POTASSIUM PHOSPHATE DIBASIC;SODIUM CHLORIDE;SODIUM PHOSPHATE [Concomitant]
     Dosage: 1.5 MG, PRN
     Route: 048
  19. VELETRI [Suspect]
     Active Substance: EPOPROSTENOL
     Indication: PULMONARY ARTERIAL HYPERTENSION
     Dosage: 59 NG/KG, PER MIN
     Route: 042
     Dates: start: 2016, end: 20200609
  20. PREDNISONE. [Concomitant]
     Active Substance: PREDNISONE
     Dosage: 40 MG, QD
     Route: 048
  21. MAGNESIUM OXIDE. [Concomitant]
     Active Substance: MAGNESIUM OXIDE
     Dosage: 800 MG, PRN
     Route: 048
  22. SPIRONOLACTONE. [Concomitant]
     Active Substance: SPIRONOLACTONE
     Dosage: 50 MG, QD
     Route: 048
  23. SODIUM PHOSPHATE AND SODIUM BIPHOSPHATE [Concomitant]
     Active Substance: SODIUM PHOSPHATE\SODIUM PHOSPHATE, MONOBASIC, UNSPECIFIED FORM
     Dosage: 30 UNK
     Route: 042
  24. ADCIRCA [Concomitant]
     Active Substance: TADALAFIL
  25. CEFEPIME [Concomitant]
     Active Substance: CEFEPIME HYDROCHLORIDE
     Dosage: 2 GM INJ VIAL + WATER FOR INJECTION 20 ML
     Route: 042
  26. DIGOXIN. [Concomitant]
     Active Substance: DIGOXIN
     Dosage: 0.125 MG, QD
     Route: 048
  27. POTASSIUM CHLORIDE. [Concomitant]
     Active Substance: POTASSIUM CHLORIDE
     Dosage: 20 MEQ, PRN
     Route: 048
  28. BUMETANIDE. [Concomitant]
     Active Substance: BUMETANIDE
     Dosage: 1 MG, BID
     Route: 048
  29. LITHIUM. [Concomitant]
     Active Substance: LITHIUM
     Dosage: 300 MG, Q12HRS
     Route: 048
  30. MICAFUNGIN SODIUM [Concomitant]
     Active Substance: MICAFUNGIN SODIUM
     Dosage: 100 MG INJ
     Route: 042
  31. POTASSIUM CHLORIDE. [Concomitant]
     Active Substance: POTASSIUM CHLORIDE
     Dosage: 10 MEQ/50 ML SOLUTION, PRN
  32. SODIUM PHOSPHATE AND SODIUM BIPHOSPHATE [Concomitant]
     Active Substance: SODIUM PHOSPHATE\SODIUM PHOSPHATE, MONOBASIC, UNSPECIFIED FORM
     Dosage: 15 MMOL, PRN
  33. TADALAFIL. [Concomitant]
     Active Substance: TADALAFIL
     Dosage: 20 MG, BID
     Route: 048
  34. ACETAMINOPHEN. [Concomitant]
     Active Substance: ACETAMINOPHEN
     Dosage: 325 MG, Q4HRS
     Route: 048
  35. HYDROCODONE BITARTRATE AND ACETAMINOPHEN [Concomitant]
     Active Substance: ACETAMINOPHEN\HYDROCODONE BITARTRATE
     Dosage: 325 MG, Q4HRS
     Route: 048
  36. CALCIUM GLUCONATE AND SODIUM CHLORIDE [Concomitant]
     Dosage: 3 G/ML, PRN
     Route: 042
  37. MAGNESIUM SULFATE. [Concomitant]
     Active Substance: MAGNESIUM SULFATE
     Dosage: 1 GM/100 ML D5W PREMIX PRN
     Route: 042

REACTIONS (17)
  - Hypoxia [Fatal]
  - Tracheostomy [Unknown]
  - Pulseless electrical activity [Unknown]
  - Anxiety [Unknown]
  - Hyperthyroidism [Unknown]
  - Weight decreased [Unknown]
  - Haematoma [Unknown]
  - Endotracheal intubation [Unknown]
  - Brain injury [Fatal]
  - Neutropenia [Unknown]
  - Acute pulmonary oedema [Unknown]
  - Condition aggravated [Fatal]
  - Headache [Unknown]
  - Surgery [Unknown]
  - Basedow^s disease [Unknown]
  - Thyroidectomy [Unknown]
  - Febrile neutropenia [Unknown]

NARRATIVE: CASE EVENT DATE: 20200524
